FAERS Safety Report 20553999 (Version 7)
Quarter: 2023Q4

REPORT INFORMATION
  Report Type: Report from Study
  Country: US (occurrence: US)
  Receive Date: 20220304
  Receipt Date: 20231115
  Transmission Date: 20240110
  Serious: Yes (Other)
  Sender: FDA-Public Use
  Company Number: US-TAKEDA-2019TUS019929

PATIENT
  Age: 63 Year
  Sex: Female
  Weight: 91 kg

DRUGS (11)
  1. PONATINIB [Suspect]
     Active Substance: PONATINIB
     Indication: Chronic myeloid leukaemia
     Dosage: 15 MILLIGRAM, QOD
     Route: 048
     Dates: start: 2016
  2. PONATINIB [Suspect]
     Active Substance: PONATINIB
     Indication: Myeloid leukaemia
     Dosage: UNK UNK, QOD
     Route: 048
     Dates: start: 20221115
  3. PONATINIB [Suspect]
     Active Substance: PONATINIB
     Indication: Tyrosine kinase mutation
  4. VITAMIN D [Concomitant]
     Active Substance: VITAMIN D NOS
     Dosage: UNK
     Route: 065
  5. MUCINEX [Concomitant]
     Active Substance: GUAIFENESIN
     Dosage: UNK
     Route: 065
  6. PREMARIN [Concomitant]
     Active Substance: ESTROGENS, CONJUGATED
     Dosage: UNK UNK, 2/WEEK
     Route: 065
  7. ESCITALOPRAM [Concomitant]
     Active Substance: ESCITALOPRAM OXALATE
     Indication: Depression
     Dosage: 10 MILLIGRAM, QD
     Route: 048
     Dates: start: 20230807
  8. ASPIRIN [Concomitant]
     Active Substance: ASPIRIN
     Dosage: 8 MILLIGRAM, QD
     Route: 048
     Dates: start: 20210105
  9. VITAMIN D3 [Concomitant]
     Active Substance: CHOLECALCIFEROL
     Indication: Vitamin D deficiency
     Dosage: UNK UNK, QD
     Route: 048
     Dates: start: 20210105
  10. CETIRIZINE [Concomitant]
     Active Substance: CETIRIZINE HYDROCHLORIDE
     Indication: Rhinitis allergic
     Dosage: 10 MILLIGRAM, QD
     Route: 048
  11. MELATONIN [Concomitant]
     Active Substance: MELATONIN
     Indication: Insomnia
     Dosage: 3 MILLIGRAM, QD
     Route: 048
     Dates: start: 20190702

REACTIONS (7)
  - Cataract [Unknown]
  - Nausea [Unknown]
  - Eye disorder [Unknown]
  - COVID-19 [Recovering/Resolving]
  - Product dose omission issue [Unknown]
  - Product packaging difficult to open [Unknown]
  - Off label use [Unknown]

NARRATIVE: CASE EVENT DATE: 20230918
